FAERS Safety Report 9841779 (Version 2)
Quarter: 2014Q1

REPORT INFORMATION
  Report Type: Spontaneous
  Country: GB (occurrence: GB)
  Receive Date: 20140124
  Receipt Date: 20140124
  Transmission Date: 20141002
  Serious: Yes (Other)
  Sender: FDA-Public Use
  Company Number: GB-WATSON-2013-12106

PATIENT
  Sex: Female

DRUGS (7)
  1. FOLIC ACID (UNKNOWN) [Suspect]
     Indication: PRODUCT USED FOR UNKNOWN INDICATION
     Dosage: UNK
     Route: 065
  2. LEVOTHYROXINE [Suspect]
     Indication: HYPOTHYROIDISM
     Dosage: 150 ?G, UNKNOWN
     Route: 048
     Dates: start: 20130505
  3. LEVOTHYROXINE [Suspect]
     Dosage: 150 ?G UNKNOWN
     Route: 048
     Dates: start: 20130819, end: 20130823
  4. FLUTICASONE [Concomitant]
     Indication: PRODUCT USED FOR UNKNOWN INDICATION
     Dosage: 50 ?G BID
     Route: 065
  5. PETHIDINE [Concomitant]
     Indication: PRODUCT USED FOR UNKNOWN INDICATION
     Dosage: 50 MG, QID
     Route: 065
  6. LORATADINE [Concomitant]
     Indication: PRODUCT USED FOR UNKNOWN INDICATION
     Dosage: 10 MG, DAILY
     Route: 065
  7. AZELASTINE HYDROCHLORIDE [Concomitant]
     Indication: PRODUCT USED FOR UNKNOWN INDICATION
     Dosage: 0.5 %, BID
     Route: 065

REACTIONS (16)
  - Hypersensitivity [Recovered/Resolved]
  - Eyelid oedema [Recovered/Resolved]
  - Psychomotor hyperactivity [Unknown]
  - Rash [Unknown]
  - Product substitution issue [Unknown]
  - Pallor [Recovered/Resolved]
  - Pruritus [Recovering/Resolving]
  - Feeling abnormal [Recovering/Resolving]
  - Fatigue [Recovering/Resolving]
  - Malaise [Recovered/Resolved]
  - Nausea [Recovered/Resolved]
  - Feeling cold [Recovered/Resolved]
  - Pharyngeal oedema [Recovering/Resolving]
  - Cyst [Recovering/Resolving]
  - Paraesthesia oral [Recovering/Resolving]
  - Lip swelling [Recovering/Resolving]
